FAERS Safety Report 10201841 (Version 1)
Quarter: 2014Q2

REPORT INFORMATION
  Report Type: Spontaneous
  Country: US (occurrence: US)
  Receive Date: 20140528
  Receipt Date: 20140528
  Transmission Date: 20141212
  Serious: No
  Sender: FDA-Public Use
  Company Number: US-BRISTOL-MYERS SQUIBB COMPANY-19248533

PATIENT
  Age: 66 Year
  Sex: Female
  Weight: 80.27 kg

DRUGS (11)
  1. METFORMIN HCL [Suspect]
  2. SYNTHROID [Concomitant]
  3. EVISTA [Concomitant]
  4. XANAX [Concomitant]
  5. CRESTOR [Concomitant]
  6. AZOR [Concomitant]
     Dosage: 1 DF=5/40 MG
  7. PAROXETINE [Concomitant]
  8. LEVOCETIRIZINE [Concomitant]
  9. ZYRTEC [Concomitant]
  10. SINGULAIR [Concomitant]
  11. RANITIDINE [Concomitant]

REACTIONS (1)
  - Urticaria [Unknown]
